FAERS Safety Report 10717259 (Version 4)
Quarter: 2015Q3

REPORT INFORMATION
  Report Type: Spontaneous
  Country: US (occurrence: US)
  Receive Date: 20150116
  Receipt Date: 20150727
  Transmission Date: 20151125
  Serious: Yes (Death, Other)
  Sender: FDA-Public Use
  Company Number: US-009507513-1501USA005241

PATIENT
  Sex: Female
  Weight: 68.27 kg

DRUGS (1)
  1. DESOGEN [Suspect]
     Active Substance: DESOGESTREL\ETHINYL ESTRADIOL
     Indication: CONTRACEPTION
     Dosage: UNK
     Route: 048
     Dates: start: 2010

REACTIONS (2)
  - Pulmonary embolism [Fatal]
  - Focal nodular hyperplasia [Unknown]

NARRATIVE: CASE EVENT DATE: 20120114
